FAERS Safety Report 5683575-4 (Version None)
Quarter: 2008Q2

REPORT INFORMATION
  Report Type: 
  Country: None (occurrence: None)
  Receive Date: 20080319
  Receipt Date: 20071129
  Transmission Date: 20081010
  Serious: Yes (Hospitalization, Other)
  Sender: FDA-Public Use
  Company Number: US-WYE-H01509907

PATIENT
  Age: 41 Year
  Sex: Female
  Weight: 87.17 kg

DRUGS (2)
  1. LYBREL [Suspect]
     Indication: ORAL CONTRACEPTION
     Dosage: 1 TABLET 1X PER 1 DAY, ORAL
     Route: 048
     Dates: start: 20071001, end: 20071115
  2. MULTIVIT (VITAMINS NOS) [Concomitant]

REACTIONS (1)
  - THROMBOSIS [None]
